FAERS Safety Report 7558217-3 (Version None)
Quarter: 2011Q2

REPORT INFORMATION
  Report Type: 
  Country: None (occurrence: None)
  Receive Date: 20110620
  Receipt Date: 20110609
  Transmission Date: 20111010
  Serious: Yes (Hospitalization)
  Sender: FDA-Public Use
  Company Number: SE-ASTRAZENECA-2011SE30180

PATIENT
  Age: 43 Year
  Sex: Female

DRUGS (14)
  1. CYCLOPHOSPHAMIDE [Suspect]
     Indication: WEGENER'S GRANULOMATOSIS
     Route: 065
     Dates: end: 20110412
  2. SOLU-MEDROL [Concomitant]
  3. FUROSEMIDE [Concomitant]
     Route: 048
  4. ETALPHA [Concomitant]
     Route: 048
  5. OMEPRAZOLE [Concomitant]
     Route: 048
  6. ALENDRONATE SODIUM [Concomitant]
  7. LEVOTHYROXINE SODIUM [Concomitant]
     Route: 048
  8. AZATIOPRIN [Concomitant]
     Route: 048
  9. KALCIDON [Concomitant]
  10. PREDNISOLONE [Concomitant]
     Route: 048
  11. MEROPENEM [Suspect]
     Route: 042
     Dates: start: 20110413, end: 20110415
  12. PRIMPERAN TAB [Concomitant]
     Route: 048
  13. LOSARTAN POTASSIUM [Concomitant]
  14. NEORECORMON [Concomitant]

REACTIONS (2)
  - PANCYTOPENIA [None]
  - RASH ERYTHEMATOUS [None]
